FAERS Safety Report 9797488 (Version 2)
Quarter: 2014Q2

REPORT INFORMATION
  Report Type: Report from Study
  Country: US (occurrence: US)
  Receive Date: 20140106
  Receipt Date: 20140403
  Transmission Date: 20141212
  Serious: Yes (Death)
  Sender: FDA-Public Use
  Company Number: PHEH2013US026504

PATIENT
  Age: 44 Year
  Sex: Female

DRUGS (10)
  1. AFINITOR [Suspect]
     Indication: THYROID CANCER
     Dosage: 10 MG, QD
     Route: 048
     Dates: start: 20131016, end: 20131202
  2. AFINITOR [Suspect]
     Indication: OFF LABEL USE
  3. HYDROMORPHONE [Concomitant]
     Dosage: 1 DF, EVERY 3HRS AS NEEDED
     Route: 048
  4. LIDOCAINE [Concomitant]
  5. MORPHINE [Concomitant]
     Dosage: 1 DF, Q12H
     Route: 048
  6. ACETAMINOPHEN AND CODEINE [Concomitant]
     Dosage: 2 DF, Q4H
  7. OXYCODONE [Concomitant]
     Dosage: 5 MG, Q4H
     Route: 048
  8. LEVOTHYROXINE [Concomitant]
     Dosage: 1 DF, DAILY
     Route: 048
  9. MULTI VITAMIN + MINERAL [Concomitant]
     Dosage: 1 DF, DAILY
     Route: 048
  10. LISINOPRIL [Concomitant]
     Dosage: 5 MG, DAILY
     Route: 048

REACTIONS (2)
  - Death [Fatal]
  - Malignant neoplasm progression [Unknown]
